FAERS Safety Report 13652150 (Version 1)
Quarter: 2017Q2

REPORT INFORMATION
  Report Type: Report from Study
  Country: AT (occurrence: AT)
  Receive Date: 20170614
  Receipt Date: 20170614
  Transmission Date: 20170830
  Serious: Yes (Hospitalization)
  Sender: FDA-Public Use
  Company Number: AT-AMGEN-AUTCT2012010572

PATIENT
  Age: 68 Year
  Sex: Female
  Weight: 65.4 kg

DRUGS (16)
  1. LENDORM [Concomitant]
     Active Substance: BROTIZOLAM
     Dosage: 0.25 MG, UNK
     Route: 048
     Dates: start: 20110927
  2. MEXALEN [Concomitant]
     Active Substance: ACETAMINOPHEN
     Dosage: 1 G, UNK
     Route: 048
     Dates: start: 20110628
  3. OMEPRAZOL [Concomitant]
     Active Substance: OMEPRAZOLE
     Dosage: 40 MG, UNK
     Route: 048
     Dates: start: 20110927
  4. MOTILIUM [Concomitant]
     Active Substance: DOMPERIDONE
     Dosage: 30 MG, UNK
     Route: 050
     Dates: start: 20110927
  5. NAVOBAN [Concomitant]
     Active Substance: TROPISETRON HYDROCHLORIDE
     Dosage: 5 MG, UNK
     Route: 048
     Dates: start: 20110927
  6. MYCOSTATIN [Concomitant]
     Active Substance: NYSTATIN
     Dosage: UNK UNK, UNK
     Route: 048
     Dates: start: 20111122, end: 20111125
  7. PASPERTIN [Concomitant]
     Active Substance: METOCLOPRAMIDE HYDROCHLORIDE
     Dosage: UNK GTT, UNK
     Route: 048
     Dates: start: 20110927
  8. AMG 386 [Suspect]
     Active Substance: TREBANANIB
     Indication: OVARIAN CANCER
     Dosage: 900 MG, UNK
     Route: 042
     Dates: start: 20110927
  9. THIAMAZOL [Concomitant]
     Active Substance: METHIMAZOLE
     Dosage: 10 MG, UNK
     Route: 048
  10. PEGYLATED LIPOSOMAL DOXORUBICIN HYDROCHLORIDE [Concomitant]
     Active Substance: DOXORUBICIN HYDROCHLORIDE
     Dosage: 80.5 MG, UNK
     Route: 042
     Dates: start: 20110927, end: 20111123
  11. CLAVAMOX [Concomitant]
     Active Substance: AMOXICILLIN\CLAVULANATE POTASSIUM
     Dosage: 1 G, UNK
     Route: 048
     Dates: start: 20110922, end: 20111130
  12. IRENAT [Concomitant]
     Active Substance: SODIUM PERCHLORATE MONOHYDRATE
     Dosage: UNK UNK, UNK
     Route: 048
     Dates: start: 20110918
  13. CONCOR [Concomitant]
     Active Substance: BISOPROLOL FUMARATE
     Dosage: 1.25 MG, UNK
     Route: 048
     Dates: start: 20110925
  14. DIFLUCAN [Concomitant]
     Active Substance: FLUCONAZOLE
     Dosage: 200 MG, UNK
     Route: 048
     Dates: start: 20111107, end: 20111201
  15. LOVENOX [Concomitant]
     Active Substance: ENOXAPARIN SODIUM
     Dosage: 40 MG, UNK
     Route: 058
     Dates: start: 20110918
  16. FORTECORTIN [Concomitant]
     Active Substance: DEXAMETHASONE
     Dosage: 8 MG, UNK
     Route: 048
     Dates: start: 20110926

REACTIONS (1)
  - Intra-abdominal fluid collection [Recovered/Resolved]

NARRATIVE: CASE EVENT DATE: 20111124
